FAERS Safety Report 19642057 (Version 4)
Quarter: 2021Q3

REPORT INFORMATION
  Report Type: Report from Study
  Country: US (occurrence: US)
  Receive Date: 20210731
  Receipt Date: 20210915
  Transmission Date: 20211014
  Serious: Yes (Disabling, Other)
  Sender: FDA-Public Use
  Company Number: NVSC2021US170022

PATIENT
  Sex: Female

DRUGS (1)
  1. ENTRESTO [Suspect]
     Active Substance: SACUBITRIL\VALSARTAN
     Indication: PRODUCT USED FOR UNKNOWN INDICATION
     Dosage: 200 MG, BID (97/103 MG)
     Route: 048
     Dates: start: 20210709

REACTIONS (7)
  - Decreased activity [Not Recovered/Not Resolved]
  - Agonal respiration [Not Recovered/Not Resolved]
  - Malaise [Unknown]
  - Heart rate abnormal [Not Recovered/Not Resolved]
  - Gait disturbance [Not Recovered/Not Resolved]
  - Fluid retention [Not Recovered/Not Resolved]
  - Memory impairment [Unknown]
